FAERS Safety Report 5267181-1 (Version None)
Quarter: 2007Q1

REPORT INFORMATION
  Report Type: 
  Country: None (occurrence: None)
  Receive Date: 20070312
  Receipt Date: 20070226
  Transmission Date: 20070707
  Serious: Yes (Hospitalization)
  Sender: FDA-Public Use
  Company Number: UKP07000041

PATIENT
  Sex: Female

DRUGS (2)
  1. DIDRONEL [Suspect]
     Dosage: ORAL
     Route: 048
  2. DRUG NOS [Concomitant]

REACTIONS (5)
  - ABDOMINAL PAIN UPPER [None]
  - BACK PAIN [None]
  - MOBILITY DECREASED [None]
  - MUSCLE SPASMS [None]
  - MUSCULOSKELETAL PAIN [None]
